FAERS Safety Report 23821801 (Version 1)
Quarter: 2024Q2

REPORT INFORMATION
  Report Type: Spontaneous
  Country: FR (occurrence: FR)
  Receive Date: 20240506
  Receipt Date: 20240506
  Transmission Date: 20240716
  Serious: Yes (Hospitalization)
  Sender: FDA-Public Use
  Company Number: None

PATIENT
  Age: 69 Year
  Sex: Female
  Weight: 62 kg

DRUGS (8)
  1. PACLITAXEL [Suspect]
     Active Substance: PACLITAXEL
     Indication: Ovarian cancer metastatic
     Route: 042
     Dates: start: 20230113, end: 20230510
  2. CARBOPLATIN [Suspect]
     Active Substance: CARBOPLATIN
     Indication: Ovarian cancer metastatic
     Dosage: ROA: INTRAVENOUS
     Dates: start: 20230113, end: 20230510
  3. DOLIPRANE [PARACETAMOL] [Concomitant]
     Indication: Product used for unknown indication
  4. AKYNZEO 300 mg/0.5 mg, capsule [NETUPITANT, PALONOSETRON (CHLORHYDRATE [Concomitant]
     Indication: Product used for unknown indication
  5. POLARAMINE [GUAIFENESINE, MALEATE DE DEXCHLORPHENIRAMINE] [Concomitant]
     Indication: Product used for unknown indication
  6. ACUPAN [NEFOPAM (CHLORHYDRATE DE)] [Concomitant]
     Indication: Product used for unknown indication
  7. METHYLPREDNISOLONE [Concomitant]
     Active Substance: METHYLPREDNISOLONE
     Indication: Product used for unknown indication
  8. SPASFON [Concomitant]
     Indication: Product used for unknown indication

REACTIONS (2)
  - Skin ulcer [Not Recovered/Not Resolved]
  - Skin necrosis [Not Recovered/Not Resolved]

NARRATIVE: CASE EVENT DATE: 20230216
